FAERS Safety Report 16946192 (Version 2)
Quarter: 2019Q4

REPORT INFORMATION
  Report Type: Spontaneous
  Country: US (occurrence: US)
  Receive Date: 20191022
  Receipt Date: 20191202
  Transmission Date: 20200122
  Serious: No
  Sender: FDA-Public Use
  Company Number: US-SA-2019SA292037

PATIENT
  Age: 50 Year
  Sex: Female

DRUGS (1)
  1. AUBAGIO [Suspect]
     Active Substance: TERIFLUNOMIDE

REACTIONS (6)
  - Hypersensitivity [Unknown]
  - Pain [Unknown]
  - Urticaria [Unknown]
  - Drug ineffective [Unknown]
  - Limb discomfort [Unknown]
  - Pruritus [Unknown]
